FAERS Safety Report 9258802 (Version 1)
Quarter: 2013Q2

REPORT INFORMATION
  Report Type: Spontaneous
  Country: FR (occurrence: FR)
  Receive Date: 20130426
  Receipt Date: 20130426
  Transmission Date: 20140414
  Serious: Yes (Hospitalization)
  Sender: FDA-Public Use
  Company Number: FR-BRISTOL-MYERS SQUIBB COMPANY-18827980

PATIENT
  Age: 72 Year
  Sex: Female

DRUGS (8)
  1. ERBITUX SOLN FOR INF [Suspect]
     Indication: COLON CANCER
     Dosage: 1ST COURSE DAY 1
     Route: 042
     Dates: start: 20130321, end: 20130321
  2. XYZALL [Concomitant]
     Indication: PREMEDICATION
     Dosage: TABS
     Route: 048
     Dates: start: 20130321, end: 20130321
  3. LEVOTHYROX [Concomitant]
  4. SEROPLEX [Concomitant]
  5. TRAMADOL [Concomitant]
  6. INEXIUM [Concomitant]
  7. ISOPTINE [Concomitant]
  8. PLAVIX [Concomitant]

REACTIONS (1)
  - Stress cardiomyopathy [Recovered/Resolved with Sequelae]
